FAERS Safety Report 15324865 (Version 1)
Quarter: 2018Q3

REPORT INFORMATION
  Report Type: Spontaneous
  Country: US (occurrence: US)
  Receive Date: 20180822
  Receipt Date: 20180822
  Transmission Date: 20181010
  Serious: No
  Sender: FDA-Public Use
  Company Number: None

PATIENT
  Age: 54 Year
  Sex: Male

DRUGS (3)
  1. MYFORTIC [Concomitant]
     Active Substance: MYCOPHENOLATE SODIUM
  2. ENVARSUS XR [Suspect]
     Active Substance: TACROLIMUS
     Indication: PRURITUS GENERALISED
     Route: 048
     Dates: start: 20180622
  3. ENVARSUS XR [Suspect]
     Active Substance: TACROLIMUS
     Indication: PROPHYLAXIS AGAINST TRANSPLANT REJECTION
     Route: 048
     Dates: start: 20180806

REACTIONS (1)
  - Erectile dysfunction [None]

NARRATIVE: CASE EVENT DATE: 20180522
